FAERS Safety Report 15953254 (Version 1)
Quarter: 2019Q1

REPORT INFORMATION
  Report Type: Spontaneous
  Country: FR (occurrence: FR)
  Receive Date: 20190212
  Receipt Date: 20190212
  Transmission Date: 20190417
  Serious: Yes (Other)
  Sender: FDA-Public Use
  Company Number: FR-PROVELL PHARMACEUTICALS-2062582

PATIENT
  Sex: Male

DRUGS (1)
  1. EUTHYROX [Suspect]
     Active Substance: LEVOTHYROXINE SODIUM
     Indication: PRODUCT USED FOR UNKNOWN INDICATION

REACTIONS (9)
  - Hypothyroidism [None]
  - Blood thyroid stimulating hormone increased [None]
  - Hyperthyroidism [None]
  - Thyroxine increased [None]
  - Gastroenteritis [None]
  - Heart rate increased [None]
  - Lung infection [None]
  - Tinnitus [None]
  - Hot flush [None]

NARRATIVE: CASE EVENT DATE: 201801
